FAERS Safety Report 8021879-0 (Version None)
Quarter: 2012Q1

REPORT INFORMATION
  Report Type: 
  Country: None (occurrence: None)
  Receive Date: 20120104
  Receipt Date: 20111221
  Transmission Date: 20120608
  Serious: Yes (Hospitalization)
  Sender: FDA-Public Use
  Company Number: FR-UCBSA-048301

PATIENT
  Age: 19 Year
  Sex: Female

DRUGS (2)
  1. CIMZIA [Suspect]
     Route: 058
     Dates: start: 20110211, end: 20110603
  2. PREDNISOLONE [Concomitant]

REACTIONS (7)
  - RECTAL HAEMORRHAGE [None]
  - ANOVULVAR FISTULA [None]
  - ARTHRALGIA [None]
  - MYALGIA [None]
  - MUSCULAR WEAKNESS [None]
  - AMYOTROPHY [None]
  - MUSCULOSKELETAL PAIN [None]
